FAERS Safety Report 7019033-4 (Version None)
Quarter: 2010Q3

REPORT INFORMATION
  Report Type: 
  Country: None (occurrence: None)
  Receive Date: 20100928
  Receipt Date: 20100924
  Transmission Date: 20110219
  Serious: Yes (Hospitalization)
  Sender: FDA-Public Use
  Company Number: A0836258A

PATIENT
  Age: 78 Year
  Sex: Male
  Weight: 75.9 kg

DRUGS (6)
  1. AVANDIA [Suspect]
     Indication: DIABETES MELLITUS
     Dosage: 4MG PER DAY
     Dates: start: 20030101, end: 20070701
  2. NORVASC [Concomitant]
  3. TOPROL-XL [Concomitant]
  4. LESCOL [Concomitant]
  5. TRICOR [Concomitant]
  6. ZETIA [Concomitant]

REACTIONS (4)
  - ACUTE MYOCARDIAL INFARCTION [None]
  - ANXIETY [None]
  - DEPRESSION [None]
  - MYOCARDIAL ISCHAEMIA [None]
